FAERS Safety Report 5877378-5 (Version None)
Quarter: 2008Q3

REPORT INFORMATION
  Report Type: 
  Country: None (occurrence: None)
  Receive Date: 20080908
  Receipt Date: 20080822
  Transmission Date: 20090109
  Serious: Yes (Hospitalization, Other)
  Sender: FDA-Public Use
  Company Number: ENT 2008-0130

PATIENT
  Age: 83 Year
  Sex: Male

DRUGS (2)
  1. ENTACAPONE [Suspect]
     Indication: PARKINSON'S DISEASE
     Dosage: 200 MG/ BD ORAL
     Route: 048
     Dates: start: 20080626, end: 20080715
  2. SINEMET [Concomitant]

REACTIONS (5)
  - AKINESIA [None]
  - COMA [None]
  - DRUG DOSE OMISSION [None]
  - SUDDEN ONSET OF SLEEP [None]
  - UNRESPONSIVE TO STIMULI [None]
